FAERS Safety Report 7493288-4 (Version None)
Quarter: 2011Q2

REPORT INFORMATION
  Report Type: 
  Country: None (occurrence: None)
  Receive Date: 20110520
  Receipt Date: 20110413
  Transmission Date: 20111010
  Serious: Yes (Other)
  Sender: FDA-Public Use
  Company Number: US-BAYER-201024516NA

PATIENT
  Age: 36 Year
  Sex: Female
  Weight: 135 kg

DRUGS (10)
  1. YAZ [Suspect]
     Indication: ORAL CONTRACEPTION
     Route: 048
     Dates: start: 20060601, end: 20070501
  2. YAZ [Suspect]
     Indication: PREMENSTRUAL SYNDROME
  3. WELLBUTRIN [Concomitant]
     Dosage: 300 MG, QD
     Route: 048
  4. AVONEX [Concomitant]
     Indication: MULTIPLE SCLEROSIS
     Dosage: UNK UNK, OW
     Route: 030
  5. PRILOSEC [Concomitant]
     Indication: GASTROOESOPHAGEAL REFLUX DISEASE
     Dosage: UNK UNK, QD
     Route: 048
  6. MECLIZINE [Concomitant]
     Dosage: UNK UNK, PRN
     Route: 048
  7. NORCO [Concomitant]
     Dosage: UNK UNK, PRN
     Route: 048
  8. YASMIN [Suspect]
     Indication: PREMENSTRUAL SYNDROME
  9. ORTHO TRI-CYCLEN LO [Concomitant]
  10. YASMIN [Suspect]
     Indication: ORAL CONTRACEPTION
     Route: 048
     Dates: start: 20060601, end: 20070501

REACTIONS (2)
  - CHOLECYSTITIS [None]
  - ABDOMINAL PAIN UPPER [None]
